FAERS Safety Report 8265627-8 (Version None)
Quarter: 2012Q2

REPORT INFORMATION
  Report Type: 
  Country: None (occurrence: None)
  Receive Date: 20120406
  Receipt Date: 20120323
  Transmission Date: 20120825
  Serious: Yes (Other)
  Sender: FDA-Public Use
  Company Number: CHPA2012US005770

PATIENT
  Age: 72 Year
  Sex: Female

DRUGS (1)
  1. BENEFIBER W/ WHEAT DEXTRIN [Suspect]
     Indication: LAXATIVE SUPPORTIVE CARE
     Dosage: A BIG SPOONFUL AS NEEDED
     Route: 048
     Dates: start: 20060101

REACTIONS (5)
  - EXPIRED DRUG ADMINISTERED [None]
  - LYMPHOEDEMA [None]
  - OEDEMA [None]
  - HYPERSENSITIVITY [None]
  - OFF LABEL USE [None]
